FAERS Safety Report 4786029-2 (Version None)
Quarter: 2005Q3

REPORT INFORMATION
  Report Type: 
  Country: None (occurrence: None)
  Receive Date: 20050930
  Receipt Date: 20050914
  Transmission Date: 20060218
  Serious: Yes (Death, Hospitalization)
  Sender: FDA-Public Use
  Company Number: DSA_27098_2005

PATIENT
  Age: 48 Year
  Sex: Male

DRUGS (3)
  1. TEMESTA [Suspect]
     Indication: DEPRESSION
     Dosage: 1 MG Q DAY PO
     Route: 048
     Dates: start: 20041105, end: 20041110
  2. PROMAZINE HCL [Concomitant]
  3. HALOPERIDOL [Concomitant]

REACTIONS (9)
  - FALL [None]
  - FEMUR FRACTURE [None]
  - HAEMOTHORAX [None]
  - KIDNEY RUPTURE [None]
  - PELVIC FRACTURE [None]
  - RIB FRACTURE [None]
  - SHOCK HAEMORRHAGIC [None]
  - SPLENIC RUPTURE [None]
  - SUICIDE ATTEMPT [None]
